FAERS Safety Report 7367548-1 (Version None)
Quarter: 2011Q1

REPORT INFORMATION
  Report Type: 
  Country: None (occurrence: None)
  Receive Date: 20110322
  Receipt Date: 20110317
  Transmission Date: 20110831
  Serious: Yes (Hospitalization, Other)
  Sender: FDA-Public Use
  Company Number: BR-ABBOTT-10P-020-0627712-00

PATIENT
  Sex: Female
  Weight: 80 kg

DRUGS (9)
  1. HUMIRA [Suspect]
     Dosage: INDUCTION DOSE: 80MG
     Route: 058
     Dates: start: 20090301
  2. AMITRIPTYLINE [Concomitant]
     Indication: OBSESSIVE-COMPULSIVE DISORDER
  3. CLONAZEPAM [Concomitant]
     Indication: SLEEP DISORDER THERAPY
     Dosage: 30 ML DAILY
     Route: 048
  4. HUMIRA [Suspect]
     Indication: CROHN'S DISEASE
     Dosage: INDUCTION DOSE: 160MG
     Route: 058
     Dates: start: 20090301, end: 20090301
  5. HUMIRA [Suspect]
     Route: 058
     Dates: end: 20101201
  6. HUMIRA [Suspect]
     Route: 058
  7. SUPRADYN [Concomitant]
     Indication: VITAMIN SUPPLEMENTATION
     Route: 048
     Dates: start: 20100101
  8. LOPERAMIDE HYDROCHLORIDE [Concomitant]
     Indication: DIARRHOEA
     Route: 048
  9. AMITRIPTYLINE [Concomitant]
     Indication: DEPRESSION
     Route: 048

REACTIONS (3)
  - ENTERITIS INFECTIOUS [None]
  - PYREXIA [None]
  - GASTROINTESTINAL DISORDER [None]
